FAERS Safety Report 12999060 (Version 2)
Quarter: 2016Q4

REPORT INFORMATION
  Report Type: Spontaneous
  Country: US (occurrence: US)
  Receive Date: 20161205
  Receipt Date: 20161222
  Transmission Date: 20170207
  Serious: No
  Sender: FDA-Public Use
  Company Number: US-PFIZER INC-2016555585

PATIENT
  Age: 43 Year
  Sex: Male
  Weight: 195.1 kg

DRUGS (1)
  1. CHANTIX [Suspect]
     Active Substance: VARENICLINE TARTRATE
     Indication: SMOKING CESSATION THERAPY
     Dosage: UNK, 1X/DAY
     Dates: start: 2006

REACTIONS (4)
  - Nightmare [Unknown]
  - Agoraphobia [Recovering/Resolving]
  - Schizoid personality disorder [Recovering/Resolving]
  - Abnormal dreams [Unknown]

NARRATIVE: CASE EVENT DATE: 2006
